FAERS Safety Report 7471132-9 (Version None)
Quarter: 2011Q2

REPORT INFORMATION
  Report Type: 
  Country: None (occurrence: None)
  Receive Date: 20110510
  Receipt Date: 20110507
  Transmission Date: 20111010
  Serious: Yes (Other)
  Sender: FDA-Public Use
  Company Number: CHPA2011US06453

PATIENT
  Sex: Male

DRUGS (1)
  1. EXCEDRIN UNKNOWN [Suspect]
     Route: 065

REACTIONS (2)
  - DUODENAL PERFORATION [None]
  - HAEMORRHAGE [None]
